FAERS Safety Report 9520714 (Version 1)
Quarter: 2013Q1

REPORT INFORMATION
  Report Type: Spontaneous
  Country: US (occurrence: None)
  Receive Date: 20130305
  Receipt Date: 20130305
  Transmission Date: 20140127
  Serious: Yes (Hospitalization)
  Sender: FDA-Public Use
  Company Number: 163-21880-12040336

PATIENT
  Age: 80 Year
  Sex: Male

DRUGS (5)
  1. REVLIMID [Suspect]
     Indication: PLASMA CELL MYELOMA
     Dosage: 5 MG, Q DAYS 1-21, PO
     Route: 048
     Dates: start: 20101224
  2. PRILOSEC (OMEPRAZOLE) (UNKNOWN) [Concomitant]
  3. ZOCOR (SIMVASTATIN) (UNKNOWN) [Concomitant]
  4. DIOVAN (VALSARTAN) (UNKNOWN) [Concomitant]
  5. KCL (POTASSIUM CHLORIDE) (UNKNOWN) [Concomitant]

REACTIONS (3)
  - Dehydration [None]
  - Abnormal dreams [None]
  - Decreased appetite [None]
